FAERS Safety Report 21382652 (Version 4)
Quarter: 2023Q1

REPORT INFORMATION
  Report Type: Spontaneous
  Country: JP (occurrence: JP)
  Receive Date: 20220927
  Receipt Date: 20230321
  Transmission Date: 20230418
  Serious: Yes (Death)
  Sender: FDA-Public Use
  Company Number: JP-CHUGAI-2022037100

PATIENT
  Age: 66 Year
  Sex: Male
  Weight: 51.6 kg

DRUGS (4)
  1. AVASTIN [Suspect]
     Active Substance: BEVACIZUMAB
     Indication: Rectal cancer
     Dosage: 440 MILLIGRAM, ONCE/3WEEKS
     Route: 041
     Dates: start: 20220329, end: 20220510
  2. BEVACIZUMAB [Suspect]
     Active Substance: BEVACIZUMAB
     Indication: Rectal cancer
     Dosage: 440 MILLIGRAM, ONCE/3WEEKS
     Route: 041
     Dates: start: 20220531, end: 20220802
  3. CAPECITABINE [Suspect]
     Active Substance: CAPECITABINE
     Indication: Rectal cancer
     Dosage: UNK
     Route: 048
     Dates: start: 20220329, end: 20220822
  4. OXALIPLATIN [Concomitant]
     Active Substance: OXALIPLATIN
     Indication: Rectal cancer
     Dosage: UNK
     Route: 041
     Dates: start: 20220329, end: 20220822

REACTIONS (3)
  - Perforation [Fatal]
  - Pulmonary fistula [Fatal]
  - Multiple organ dysfunction syndrome [Fatal]

NARRATIVE: CASE EVENT DATE: 20220828
